FAERS Safety Report 4696196-7 (Version None)
Quarter: 2005Q2

REPORT INFORMATION
  Report Type: 
  Country: None (occurrence: None)
  Receive Date: 20050608
  Receipt Date: 20040811
  Transmission Date: 20051028
  Serious: Yes (Other)
  Sender: FDA-Public Use
  Company Number: 377343

PATIENT
  Sex: 0

DRUGS (2)
  1. ROACCUTANE (ISOTRETINOIN) [Suspect]
     Indication: ACNE
     Dosage: ORAL
     Route: 048
     Dates: start: 20040211, end: 20040414
  2. FEMULEN (ETHYNODIOL DIACETATE) [Concomitant]

REACTIONS (1)
  - ABORTION INDUCED [None]
